FAERS Safety Report 9693253 (Version 1)
Quarter: 2013Q4

REPORT INFORMATION
  Report Type: Spontaneous
  Country: US (occurrence: None)
  Receive Date: 20131114
  Receipt Date: 20131114
  Transmission Date: 20140711
  Serious: Yes (Disabling, Other)
  Sender: FDA-Public Use
  Company Number: SYM-2013-12587

PATIENT
  Age: 45 Year
  Sex: Female

DRUGS (1)
  1. XENAZINE [Suspect]
     Indication: CHOREA
     Dosage: 12.5 MG, 2 IN 1 D, ORAL
     Route: 048
     Dates: start: 201009

REACTIONS (3)
  - Cardiovascular insufficiency [None]
  - Diabetic complication [None]
  - Leg amputation [None]
